FAERS Safety Report 21398558 (Version 3)
Quarter: 2025Q4

REPORT INFORMATION
  Report Type: Spontaneous
  Country: EU (occurrence: EU)
  Receive Date: 20220930
  Receipt Date: 20251028
  Transmission Date: 20260117
  Serious: Yes (Other)
  Sender: BAUSCH AND LOMB
  Company Number: EU-MLMSERVICE-20220915-3794583-1

PATIENT
  Age: 82 Year
  Sex: Male

DRUGS (4)
  1. DEXAMETHASONE [Suspect]
     Active Substance: DEXAMETHASONE
     Indication: COVID-19
     Route: 065
     Dates: start: 20210329, end: 20210407
  2. PEMBROLIZUMAB [Interacting]
     Active Substance: PEMBROLIZUMAB
     Indication: Metastatic carcinoma of the bladder
     Route: 042
     Dates: start: 20200806, end: 20210308
  3. PEMBROLIZUMAB [Interacting]
     Active Substance: PEMBROLIZUMAB
     Indication: Neoplasm progression
     Dosage: RESUMED ON 18 MAY 2021 AFTER AN INTERRUPTION OF TEN WEEKS
     Route: 042
     Dates: start: 20210518
  4. OXYGEN [Concomitant]
     Active Substance: OXYGEN
     Indication: Oxygen therapy
     Dosage: UP TO 12 L/MINUTE WITHOUT NON INVASIVE VENTILATION
     Route: 065
     Dates: start: 2021, end: 2021

REACTIONS (3)
  - Neoplasm progression [Recovering/Resolving]
  - Transitional cell carcinoma metastatic [Recovering/Resolving]
  - Drug interaction [Recovering/Resolving]
